FAERS Safety Report 21584901 (Version 1)
Quarter: 2022Q4

REPORT INFORMATION
  Report Type: Spontaneous
  Country: RO (occurrence: RO)
  Receive Date: 20221111
  Receipt Date: 20221111
  Transmission Date: 20230113
  Serious: Yes (Congenital Anomaly, Other)
  Sender: FDA-Public Use
  Company Number: RO-KRKA-RO2022K10751LIT

PATIENT
  Weight: 2.6 kg

DRUGS (2)
  1. HYDROXYCHLOROQUINE SULFATE [Suspect]
     Active Substance: HYDROXYCHLOROQUINE SULFATE
     Indication: Foetal exposure during pregnancy
     Dosage: MATERNAL DOSE: UNK
     Route: 064
  2. DEXAMETHASONE [Suspect]
     Active Substance: DEXAMETHASONE
     Indication: Foetal exposure during pregnancy
     Dosage: MATERNAL DOSE: 4 MG, PER DAY
     Route: 064

REACTIONS (4)
  - Endocardial fibroelastosis [Unknown]
  - Atrioventricular block complete [Unknown]
  - Premature baby [Unknown]
  - Foetal exposure during pregnancy [Unknown]
